FAERS Safety Report 5319316-X (Version None)
Quarter: 2007Q2

REPORT INFORMATION
  Report Type: 
  Country: None (occurrence: None)
  Receive Date: 20070508
  Receipt Date: 20070430
  Transmission Date: 20071010
  Serious: Yes (Hospitalization)
  Sender: FDA-Public Use
  Company Number: US-ELI_LILLY_AND_COMPANY-US200702004902

PATIENT
  Age: 71 Year
  Sex: Male
  Weight: 69.841 kg

DRUGS (11)
  1. TOPROL-XL [Concomitant]
  2. BYETTA [Suspect]
     Indication: DIABETES MELLITUS
     Dosage: 5 UG, 2/D
     Dates: start: 20061117, end: 20061215
  3. BYETTA [Suspect]
     Dosage: 10 UG, 2/D
     Dates: start: 20061215
  4. METFORMIN HCL [Concomitant]
  5. ACTOS [Concomitant]
  6. LIPITOR [Concomitant]
  7. LOTREL [Concomitant]
  8. ASPIRIN [Concomitant]
  9. GLIMEPIRIDE [Concomitant]
  10. ACYCLOVIR [Concomitant]
  11. HALCION [Concomitant]

REACTIONS (5)
  - BLOOD CREATININE INCREASED [None]
  - DECREASED APPETITE [None]
  - SUPRAVENTRICULAR TACHYCARDIA [None]
  - UPPER RESPIRATORY TRACT INFECTION [None]
  - WEIGHT DECREASED [None]
